FAERS Safety Report 7679392-6 (Version None)
Quarter: 2011Q3

REPORT INFORMATION
  Report Type: 
  Country: None (occurrence: None)
  Receive Date: 20110812
  Receipt Date: 20110729
  Transmission Date: 20111222
  Serious: Yes (Other)
  Sender: FDA-Public Use
  Company Number: GB-MYLANLABS-2011S1015775

PATIENT
  Age: 27 Year
  Sex: Female

DRUGS (2)
  1. ERYTHROMYCIN [Suspect]
     Indication: INFECTION
  2. CYTOTEC [Suspect]
     Indication: PRODUCT USED FOR UNKNOWN INDICATION

REACTIONS (3)
  - UTERINE RUPTURE [None]
  - OFF LABEL USE [None]
  - MATERNAL EXPOSURE DURING PREGNANCY [None]
